FAERS Safety Report 7406928-2 (Version None)
Quarter: 2011Q2

REPORT INFORMATION
  Report Type: 
  Country: None (occurrence: None)
  Receive Date: 20110411
  Receipt Date: 20110330
  Transmission Date: 20111010
  Serious: Yes (Other)
  Sender: FDA-Public Use
  Company Number: SG-BAYER-2011-028170

PATIENT
  Sex: Female

DRUGS (3)
  1. PHENYTOIN [Suspect]
  2. ASPIRIN [Suspect]
  3. TRAMADOL HCL [Suspect]

REACTIONS (3)
  - TRANSAMINASES INCREASED [None]
  - RASH ERYTHEMATOUS [None]
  - MUCOSAL INFLAMMATION [None]
